FAERS Safety Report 9897370 (Version 2)
Quarter: 2014Q2

REPORT INFORMATION
  Report Type: Spontaneous
  Country: BR (occurrence: BR)
  Receive Date: 20140214
  Receipt Date: 20140418
  Transmission Date: 20141212
  Serious: Yes (Hospitalization, Other)
  Sender: FDA-Public Use
  Company Number: BR-JNJFOC-20140205834

PATIENT
  Sex: Female

DRUGS (7)
  1. REMICADE [Suspect]
     Indication: CROHN^S DISEASE
     Route: 042
     Dates: start: 20140211
  2. REMICADE [Suspect]
     Indication: CROHN^S DISEASE
     Route: 042
     Dates: start: 20131203
  3. REMICADE [Suspect]
     Indication: CROHN^S DISEASE
     Route: 042
     Dates: start: 20120319
  4. OMEPRAZOLE [Concomitant]
     Indication: GASTROINTESTINAL DISORDER THERAPY
     Route: 065
  5. AMOXICILLIN-CLAVULANIC ACID [Concomitant]
     Indication: ANAL FISTULA
     Route: 065
  6. EXODUS [Concomitant]
     Indication: DEPRESSION
     Route: 065
  7. OLCADIL [Concomitant]
     Indication: SEDATIVE THERAPY
     Route: 065

REACTIONS (3)
  - Investigation [Recovered/Resolved]
  - Anal fistula infection [Not Recovered/Not Resolved]
  - Pyrexia [Unknown]
